FAERS Safety Report 8818496 (Version 1)
Quarter: 2012Q4

REPORT INFORMATION
  Report Type: Spontaneous
  Country: US (occurrence: None)
  Receive Date: 20121003
  Receipt Date: 20121003
  Transmission Date: 20130627
  Serious: Yes (Hospitalization)
  Sender: FDA-Public Use
  Company Number: DSU-2012-07657

PATIENT
  Age: 61 Year
  Sex: Female
  Weight: 81.65 kg

DRUGS (4)
  1. WELCHOL [Suspect]
     Indication: HYPERCHOLESTEROLEMIA
     Route: 048
  2. LEVAQUIN [Suspect]
     Indication: DRUG USE FOR UNKNOWN INDICATION
  3. SYNTHROID (LEVOTHYROXINE) [Concomitant]
  4. LOSARTAN (LOSARTAN) (LOSARTAN) [Concomitant]

REACTIONS (2)
  - Drug hypersensitivity [None]
  - Hand fracture [None]
